FAERS Safety Report 10924737 (Version 1)
Quarter: 2015Q1

REPORT INFORMATION
  Report Type: Spontaneous
  Country: US (occurrence: None)
  Receive Date: 20150129
  Receipt Date: 20150129
  Transmission Date: 20150721
  Serious: No
  Sender: FDA-Public Use
  Company Number: A-US2014-103451

PATIENT
  Age: 69 Year
  Sex: Female

DRUGS (13)
  1. OPSUMIT [Suspect]
     Active Substance: MACITENTAN
     Indication: PULMONARY ARTERIAL HYPERTENSION
     Route: 048
     Dates: start: 201406
  2. POTASSIUM (POTASSIUM) [Concomitant]
     Active Substance: POTASSIUM
  3. LEVOTHYROXINE (LEVOTHYROXINE) [Concomitant]
     Active Substance: LEVOTHYROXINE
  4. ATENOLOL (ATENOLOL) [Concomitant]
     Active Substance: ATENOLOL
  5. LEVEMIR [Concomitant]
     Active Substance: INSULIN DETEMIR
  6. IBUPROFEN (IBUPROFEN) [Concomitant]
     Active Substance: IBUPROFEN
  7. SINGULAIR (MONTELUKAST SODIUM) [Concomitant]
  8. FLECAINIDE (FLECAINIDE) [Concomitant]
     Active Substance: FLECAINIDE
  9. PRIMIDONE (PRIMIDONE) [Concomitant]
  10. VICODIN [Concomitant]
     Active Substance: ACETAMINOPHEN\HYDROCODONE BITARTRATE
  11. LIPITOR [Concomitant]
     Active Substance: ATORVASTATIN CALCIUM
  12. LASIX [Concomitant]
     Active Substance: FUROSEMIDE
  13. NITROFURANTOID (NITROFURANTOIN) [Concomitant]

REACTIONS (2)
  - Shoulder operation [None]
  - Urinary tract infection [None]
